FAERS Safety Report 4914995-0 (Version None)
Quarter: 2006Q1

REPORT INFORMATION
  Report Type: 
  Country: None (occurrence: None)
  Receive Date: 20060215
  Receipt Date: 20060215
  Transmission Date: 20060701
  Serious: Yes (Hospitalization)
  Sender: FDA-Public Use
  Company Number: None

PATIENT
  Sex: Male
  Weight: 70.3075 kg

DRUGS (3)
  1. NPH INSULIN [Suspect]
     Indication: DIABETES MELLITUS
  2. ACCUPRIL [Concomitant]
  3. ATENOLOL [Concomitant]

REACTIONS (1)
  - HYPOGLYCAEMIA [None]
